FAERS Safety Report 11499779 (Version 1)
Quarter: 2015Q3

REPORT INFORMATION
  Report Type: Spontaneous
  Country: US (occurrence: None)
  Receive Date: 20150911
  Receipt Date: 20150911
  Transmission Date: 20151125
  Serious: No
  Sender: FDA-Public Use
  Company Number: None

PATIENT
  Age: 61 Year
  Sex: Male
  Weight: 62.14 kg

DRUGS (2)
  1. LEVAQUIN [Concomitant]
     Active Substance: LEVOFLOXACIN
  2. ROCEPHIN [Suspect]
     Active Substance: CEFTRIAXONE SODIUM
     Route: 042
     Dates: start: 20150903, end: 20150903

REACTIONS (3)
  - Pruritus [None]
  - Vomiting [None]
  - Throat irritation [None]

NARRATIVE: CASE EVENT DATE: 20150903
